FAERS Safety Report 11934565 (Version 1)
Quarter: 2016Q1

REPORT INFORMATION
  Report Type: Spontaneous
  Country: US (occurrence: None)
  Receive Date: 20160120
  Receipt Date: 20160120
  Transmission Date: 20160526
  Serious: Yes (Disabling, Other)
  Sender: FDA-Public Use
  Company Number: None

PATIENT
  Age: 45 Year
  Sex: Female
  Weight: 57.61 kg

DRUGS (4)
  1. VITAMIN D [Concomitant]
     Active Substance: CHOLECALCIFEROL
  2. IMIQUIMOD 5% FOUGERA [Suspect]
     Active Substance: IMIQUIMOD
     Indication: ACTINIC KERATOSIS
     Dosage: TOPICAL CREAM ONCE DAILY APPLIED TO A SURFACE, USUALLY THE SKIN
     Dates: start: 20160101, end: 20160113
  3. IMIQUIMOD 5% FOUGERA [Suspect]
     Active Substance: IMIQUIMOD
     Indication: BASAL CELL CARCINOMA
     Dosage: TOPICAL CREAM ONCE DAILY APPLIED TO A SURFACE, USUALLY THE SKIN
     Dates: start: 20160101, end: 20160113
  4. MULTI-VITAMIN (WOMEN^S) [Concomitant]

REACTIONS (4)
  - Feeling abnormal [None]
  - Joint stiffness [None]
  - Pain in jaw [None]
  - Influenza like illness [None]

NARRATIVE: CASE EVENT DATE: 20160113
